FAERS Safety Report 8929311 (Version 1)
Quarter: 2012Q4

REPORT INFORMATION
  Report Type: Spontaneous
  Country: US (occurrence: None)
  Receive Date: 20121126
  Receipt Date: 20121126
  Transmission Date: 20130627
  Serious: Yes (Hospitalization, Other)
  Sender: FDA-Public Use
  Company Number: None

PATIENT
  Age: 67 Year
  Sex: Female
  Weight: 53.98 kg

DRUGS (1)
  1. PENNSAID [Suspect]
     Indication: ARTHRITIS
     Dosage: 20 drops 2x/day side of lt ankle
     Dates: start: 201206

REACTIONS (2)
  - Oedema peripheral [None]
  - Fluid retention [None]
